FAERS Safety Report 24240193 (Version 2)
Quarter: 2024Q3

REPORT INFORMATION
  Report Type: Spontaneous
  Country: US (occurrence: US)
  Receive Date: 20240822
  Receipt Date: 20240912
  Transmission Date: 20241017
  Serious: No
  Sender: Harrow Health
  Company Number: US-IMP-2024000605

PATIENT
  Sex: Female

DRUGS (1)
  1. VEVYE [Suspect]
     Active Substance: CYCLOSPORINE
     Indication: Product used for unknown indication
     Route: 065
     Dates: start: 202407

REACTIONS (3)
  - Eye irritation [Recovering/Resolving]
  - Ocular hyperaemia [Recovering/Resolving]
  - Asthenopia [Recovering/Resolving]

NARRATIVE: CASE EVENT DATE: 20240701
